FAERS Safety Report 25139521 (Version 1)
Quarter: 2025Q1

REPORT INFORMATION
  Report Type: Report from Study
  Country: CA (occurrence: CA)
  Receive Date: 20250331
  Receipt Date: 20250331
  Transmission Date: 20250409
  Serious: Yes (Other)
  Sender: BAUSCH AND LOMB
  Company Number: CA-BAUSCH-BL-2024-016528

PATIENT
  Age: 41 Year
  Sex: Male

DRUGS (2)
  1. SILIQ [Suspect]
     Active Substance: BRODALUMAB
     Indication: Psoriasis
     Dosage: 210 MG / 1.5 ML, WEEKLY (WEEK 0,1,2)
     Route: 058
     Dates: start: 20241106, end: 202411
  2. SILIQ [Suspect]
     Active Substance: BRODALUMAB
     Dosage: 210 MG / 1.5 ML, Q2 WEEKS
     Route: 058

REACTIONS (11)
  - Erectile dysfunction [Not Recovered/Not Resolved]
  - Painful erection [Not Recovered/Not Resolved]
  - Spontaneous penile erection [Not Recovered/Not Resolved]
  - Sleep disorder due to general medical condition, insomnia type [Not Recovered/Not Resolved]
  - Disturbance in attention [Not Recovered/Not Resolved]
  - Irritability [Not Recovered/Not Resolved]
  - Hypersomnia [Not Recovered/Not Resolved]
  - Psoriasis [Not Recovered/Not Resolved]
  - Disease recurrence [Not Recovered/Not Resolved]
  - Fatigue [Recovered/Resolved]
  - Off label use [Unknown]

NARRATIVE: CASE EVENT DATE: 20241101
